FAERS Safety Report 8693928 (Version 2)
Quarter: 2012Q4

REPORT INFORMATION
  Report Type: 
  Country: US (occurrence: US)
  Receive Date: 20120731
  Receipt Date: 20120928
  Transmission Date: 20130627
  Serious: No
  Sender: FDA-Public Use
  Company Number: US-PFIZER INC-2012181720

PATIENT
  Age: 45 Year
  Sex: Female
  Weight: 119 kg

DRUGS (4)
  1. NORVASC [Suspect]
     Indication: HYPERTENSION
     Dosage: 5 mg, daily
     Dates: start: 2003
  2. PROTONIX [Suspect]
     Indication: GASTROOESOPHAGEAL REFLUX DISEASE
     Dosage: UNK
  3. PROTONIX [Suspect]
     Dosage: 40 mg, 2x/day
     Dates: start: 201103
  4. FENTANYL [Concomitant]
     Dosage: UNK

REACTIONS (1)
  - Pyrexia [Recovered/Resolved]
